FAERS Safety Report 4886810-5 (Version None)
Quarter: 2006Q1

REPORT INFORMATION
  Report Type: 
  Country: None (occurrence: None)
  Receive Date: 20060119
  Receipt Date: 20060119
  Transmission Date: 20060701
  Serious: Yes (Death)
  Sender: FDA-Public Use
  Company Number: None

PATIENT
  Age: 53 Year
  Sex: Male
  Weight: 60.1923 kg

DRUGS (3)
  1. CISPLATIN [Suspect]
     Indication: RECURRENT CANCER
     Dosage: 53 MG  WEEKLY   IV DRIP
     Route: 041
     Dates: start: 20051220, end: 20051220
  2. CISPLATIN [Suspect]
     Indication: TONGUE NEOPLASM MALIGNANT STAGE UNSPECIFIED
     Dosage: 53 MG  WEEKLY   IV DRIP
     Route: 041
     Dates: start: 20051220, end: 20051220
  3. IRINOTECAN HCL [Suspect]
     Dosage: 88 MG  WEEKLY  IV DRIP
     Route: 041
     Dates: start: 20051220, end: 20051220

REACTIONS (6)
  - BONE DISORDER [None]
  - DEHYDRATION [None]
  - DIARRHOEA [None]
  - DRUG TOXICITY [None]
  - FEEDING TUBE COMPLICATION [None]
  - WOUND DEHISCENCE [None]
